FAERS Safety Report 10638956 (Version 1)
Quarter: 2014Q4

REPORT INFORMATION
  Report Type: Report from Study
  Country: US (occurrence: US)
  Receive Date: 20141208
  Receipt Date: 20141208
  Transmission Date: 20150529
  Serious: Yes (Other)
  Sender: FDA-Public Use
  Company Number: US-TAKEDA-2014TUS013252

PATIENT
  Sex: Female
  Weight: 105.67 kg

DRUGS (2)
  1. SEVERAL OTHER MEDS [Concomitant]
     Dosage: UNK
     Route: 065
  2. CONTRAVE [Suspect]
     Active Substance: BUPROPION HYDROCHLORIDE\NALTREXONE HYDROCHLORIDE
     Indication: OVERWEIGHT
     Dosage: 1 DF (TABLET) DAILY IN AM
     Route: 048
     Dates: start: 20141127, end: 20141201

REACTIONS (8)
  - Chest pain [Recovering/Resolving]
  - Diplopia [Not Recovered/Not Resolved]
  - Urticaria [Recovering/Resolving]
  - Nausea [Unknown]
  - Migraine [Not Recovered/Not Resolved]
  - Pain in extremity [Recovering/Resolving]
  - Tremor [Recovering/Resolving]
  - Balance disorder [Not Recovered/Not Resolved]
